FAERS Safety Report 4737770-9 (Version None)
Quarter: 2005Q3

REPORT INFORMATION
  Report Type: 
  Country: None (occurrence: None)
  Receive Date: 20050805
  Receipt Date: 20050727
  Transmission Date: 20060218
  Serious: Yes (Hospitalization, Other)
  Sender: FDA-Public Use
  Company Number: 200513042BCC

PATIENT
  Age: 66 Year
  Sex: Male
  Weight: 83.4619 kg

DRUGS (4)
  1. REGIMEN BAYER 81MG (ACETYLSALICYLIC ACID) [Suspect]
     Dosage: 81 MG, QD, ORAL
     Route: 048
     Dates: end: 19981224
  2. LOPRESSOR [Concomitant]
  3. ZOCOR [Concomitant]
  4. ZESTRIL [Concomitant]

REACTIONS (5)
  - HYPERHIDROSIS [None]
  - IMPLANTABLE DEFIBRILLATOR INSERTION [None]
  - POST PROCEDURAL COMPLICATION [None]
  - SYNCOPE [None]
  - THROMBOSIS [None]
